FAERS Safety Report 4609769-4 (Version None)
Quarter: 2005Q1

REPORT INFORMATION
  Report Type: 
  Country: None (occurrence: None)
  Receive Date: 20050314
  Receipt Date: 20050304
  Transmission Date: 20050727
  Serious: Yes (Other)
  Sender: FDA-Public Use
  Company Number: GBWYE485008MAR05

PATIENT
  Age: 15 Year
  Sex: Female

DRUGS (1)
  1. MINOCIN [Suspect]
     Indication: ACNE
     Dosage: 50 MG 2X PER 1 DAY
     Route: 048
     Dates: start: 20050117, end: 20050204

REACTIONS (4)
  - BACTERIAL INFECTION [None]
  - MOUTH ULCERATION [None]
  - STEVENS-JOHNSON SYNDROME [None]
  - SWELLING FACE [None]
